FAERS Safety Report 8695161 (Version 2)
Quarter: 2013Q4

REPORT INFORMATION
  Report Type: Spontaneous
  Country: US (occurrence: US)
  Receive Date: 20120731
  Receipt Date: 20131106
  Transmission Date: 20140711
  Serious: Yes (Other)
  Sender: FDA-Public Use
  Company Number: US-009507513-1207USA010481

PATIENT
  Sex: Female

DRUGS (1)
  1. ZOCOR [Suspect]
     Dosage: 20 MG, QPM

REACTIONS (11)
  - Chest discomfort [Unknown]
  - Rash [Unknown]
  - Pain [Unknown]
  - Face oedema [Unknown]
  - Pruritus [Unknown]
  - Sleep disorder [Unknown]
  - Oedema mouth [Unknown]
  - Pyrexia [Unknown]
  - Lip swelling [Unknown]
  - Dysphonia [Unknown]
  - Contusion [Unknown]
